FAERS Safety Report 23359313 (Version 1)
Quarter: 2024Q1

REPORT INFORMATION
  Report Type: Spontaneous
  Country: PT (occurrence: PT)
  Receive Date: 20240102
  Receipt Date: 20240102
  Transmission Date: 20240409
  Serious: Yes (Hospitalization, Other)
  Sender: FDA-Public Use
  Company Number: PT-GT-20231409

PATIENT
  Age: 85 Year
  Sex: Female

DRUGS (3)
  1. APIXABAN [Suspect]
     Active Substance: APIXABAN
     Indication: Toxicity to various agents
     Dosage: 80 DF,80 COMPRIMIDOS DE APIXABANO 2.5MG
     Route: 048
  2. DIGOXIN [Suspect]
     Active Substance: DIGOXIN
     Indication: Toxicity to various agents
     Dosage: 20 DF,20 COMPRIMIDOS DE DIGOXINA 0.125MG.
     Route: 048
  3. IRBESARTAN [Suspect]
     Active Substance: IRBESARTAN
     Indication: Toxicity to various agents
     Dosage: 30 DF,30 COMPRIMIDOS DE IRBESARTA 300MG
     Route: 048

REACTIONS (5)
  - Toxicity to various agents [Recovered/Resolved]
  - Fatigue [Recovered/Resolved]
  - Intentional overdose [Recovered/Resolved]
  - Bradycardia [Recovered/Resolved]
  - Hypertension [Recovered/Resolved]
